FAERS Safety Report 5709714-4 (Version None)
Quarter: 2008Q2

REPORT INFORMATION
  Report Type: 
  Country: None (occurrence: None)
  Receive Date: 20080418
  Receipt Date: 20080409
  Transmission Date: 20081010
  Serious: Yes (Other)
  Sender: FDA-Public Use
  Company Number: PHHY2008BR05208

PATIENT
  Age: 81 Year
  Sex: Female
  Weight: 60 kg

DRUGS (5)
  1. EXELON [Suspect]
     Indication: DEMENTIA ALZHEIMER'S TYPE
     Route: 048
  2. GALANTAMINE HYDROBROMIDE [Suspect]
  3. CARNABOL [Concomitant]
     Indication: DYSPEPSIA
     Dosage: 2 TABLETS DAILY
  4. MOTILIUM [Concomitant]
     Dosage: UNK, BID
  5. THICKEN UP [Concomitant]

REACTIONS (8)
  - ABASIA [None]
  - ANOREXIA [None]
  - BEDRIDDEN [None]
  - CONDITION AGGRAVATED [None]
  - DEHYDRATION [None]
  - GASTRIC DISORDER [None]
  - NAUSEA [None]
  - VOMITING [None]
